FAERS Safety Report 15048018 (Version 2)
Quarter: 2018Q3

REPORT INFORMATION
  Report Type: Report from Study
  Country: None (occurrence: US)
  Receive Date: 20180622
  Receipt Date: 20180806
  Transmission Date: 20181010
  Serious: Yes (Hospitalization, Other)
  Sender: FDA-Public Use
  Company Number: US-ABBVIE-18K-163-2394656-00

PATIENT
  Age: 53 Year
  Sex: Female
  Weight: 68.1 kg

DRUGS (2)
  1. HUMIRA [Suspect]
     Active Substance: ADALIMUMAB
     Indication: RHEUMATOID ARTHRITIS
     Route: 058
     Dates: start: 20170811, end: 201806
  2. HUMIRA [Suspect]
     Active Substance: ADALIMUMAB
     Indication: PSORIATIC ARTHROPATHY
     Route: 058
     Dates: start: 20180618

REACTIONS (29)
  - Ligament rupture [Unknown]
  - Mobility decreased [Unknown]
  - Joint dislocation [Unknown]
  - Joint range of motion decreased [Unknown]
  - Foot fracture [Unknown]
  - Arthritis [Unknown]
  - Neuralgia [Unknown]
  - Tendon rupture [Unknown]
  - Insomnia [Unknown]
  - Swelling [Not Recovered/Not Resolved]
  - Mobility decreased [Unknown]
  - Pain in extremity [Unknown]
  - Rotator cuff syndrome [Unknown]
  - Fall [Recovered/Resolved]
  - Joint noise [Not Recovered/Not Resolved]
  - Adhesion [Unknown]
  - Tendon rupture [Unknown]
  - Musculoskeletal disorder [Unknown]
  - Joint noise [Unknown]
  - Limb injury [Unknown]
  - Meniscus injury [Unknown]
  - Muscular weakness [Unknown]
  - Peripheral swelling [Unknown]
  - Avulsion fracture [Recovered/Resolved]
  - Ligament rupture [Unknown]
  - Contusion [Unknown]
  - Weight bearing difficulty [Unknown]
  - Osteoarthritis [Unknown]
  - Crying [Unknown]

NARRATIVE: CASE EVENT DATE: 20171026
